FAERS Safety Report 7886961-7 (Version None)
Quarter: 2011Q4

REPORT INFORMATION
  Report Type: 
  Country: None (occurrence: None)
  Receive Date: 20111102
  Receipt Date: 20110713
  Transmission Date: 20120403
  Serious: No
  Sender: FDA-Public Use
  Company Number: US-AMGEN-TCS381164

PATIENT
  Age: 60 Year
  Sex: Female

DRUGS (2)
  1. TREXALL [Concomitant]
     Dosage: 8 MG, UNK
     Dates: start: 20090601
  2. ENBREL [Suspect]
     Indication: RHEUMATOID ARTHRITIS
     Dosage: 50 MG, QWK
     Route: 058
     Dates: start: 20091125

REACTIONS (8)
  - CONTUSION [None]
  - INJECTION SITE PAIN [None]
  - INJECTION SITE WARMTH [None]
  - INCREASED TENDENCY TO BRUISE [None]
  - OSTEOARTHRITIS [None]
  - INJECTION SITE ERYTHEMA [None]
  - INJECTION SITE HAEMATOMA [None]
  - ARTHROPATHY [None]
